FAERS Safety Report 6694446-9 (Version None)
Quarter: 2010Q2

REPORT INFORMATION
  Report Type: 
  Country: None (occurrence: None)
  Receive Date: 20100423
  Receipt Date: 20100420
  Transmission Date: 20101027
  Serious: Yes (Other)
  Sender: FDA-Public Use
  Company Number: US-WYE-H14692510

PATIENT
  Sex: Male

DRUGS (1)
  1. ROBITUSSIN COUGH [Suspect]
     Indication: INTENTIONAL OVERDOSE
     Dosage: 10 TO 15 COUGHGELS AT A TIME (UNKNOWN FREQUENCY)
     Route: 048
     Dates: start: 20080101, end: 20100301

REACTIONS (3)
  - DRUG ABUSE [None]
  - INTENTIONAL OVERDOSE [None]
  - SKIN ODOUR ABNORMAL [None]
